FAERS Safety Report 9638842 (Version 2)
Quarter: 2014Q1

REPORT INFORMATION
  Report Type: Spontaneous
  Country: US (occurrence: US)
  Receive Date: 20131022
  Receipt Date: 20140122
  Transmission Date: 20141002
  Serious: No
  Sender: FDA-Public Use
  Company Number: US-BRISTOL-MYERS SQUIBB COMPANY-19149996

PATIENT
  Age: 62 Year
  Sex: Female
  Weight: 136.05 kg

DRUGS (7)
  1. ELIQUIS [Suspect]
     Indication: ATRIAL FIBRILLATION
     Route: 048
     Dates: start: 20130717
  2. METFORMIN [Concomitant]
  3. LISINOPRIL [Concomitant]
  4. PRAVASTATIN SODIUM [Concomitant]
  5. VITAMIN C [Concomitant]
  6. MAGNESIUM [Concomitant]
  7. BIOTIN [Concomitant]

REACTIONS (1)
  - Dizziness [Unknown]
